FAERS Safety Report 6590661-3 (Version None)
Quarter: 2010Q1

REPORT INFORMATION
  Report Type: 
  Country: None (occurrence: None)
  Receive Date: 20100219
  Receipt Date: 20100210
  Transmission Date: 20100710
  Serious: Yes (Hospitalization, Other)
  Sender: FDA-Public Use
  Company Number: B0525248A

PATIENT
  Age: 22 Year
  Sex: Female
  Weight: 53.5 kg

DRUGS (6)
  1. TRIZIVIR [Suspect]
     Indication: ANTIVIRAL PROPHYLAXIS
     Dosage: 1TAB TWICE PER DAY
     Route: 048
     Dates: start: 20080410, end: 20080607
  2. METHYLDOPA [Concomitant]
  3. HYDRALAZINE [Concomitant]
  4. FERROUS SULFATE TAB [Concomitant]
  5. FOLATE [Concomitant]
  6. MAGNESIUM SULFATE [Concomitant]
     Route: 030

REACTIONS (8)
  - DRUG EXPOSURE DURING PREGNANCY [None]
  - GENERALISED OEDEMA [None]
  - HYPERTENSION [None]
  - INTRA-UTERINE DEATH [None]
  - OEDEMA PERIPHERAL [None]
  - PRE-ECLAMPSIA [None]
  - PROTEINURIA [None]
  - SWELLING FACE [None]
